FAERS Safety Report 6104414-3 (Version None)
Quarter: 2009Q1

REPORT INFORMATION
  Report Type: 
  Country: None (occurrence: None)
  Receive Date: 20090305
  Receipt Date: 20090224
  Transmission Date: 20090719
  Serious: Yes (Other)
  Sender: FDA-Public Use
  Company Number: IT-AMGEN-UK335301

PATIENT
  Sex: Female
  Weight: 53 kg

DRUGS (2)
  1. VECTIBIX [Suspect]
     Indication: COLORECTAL CANCER
     Route: 042
     Dates: start: 20090115
  2. MEPRAL [Concomitant]
     Route: 048
     Dates: start: 20081101

REACTIONS (1)
  - FOLLICULITIS [None]
